FAERS Safety Report 8691241 (Version 2)
Quarter: 2013Q1

REPORT INFORMATION
  Report Type: Spontaneous
  Country: BR (occurrence: BR)
  Receive Date: 20120730
  Receipt Date: 20130123
  Transmission Date: 20140127
  Serious: Yes (Other)
  Sender: FDA-Public Use
  Company Number: PHHY2012BR064767

PATIENT
  Age: 60 Year
  Sex: Female
  Weight: 62 kg

DRUGS (3)
  1. GLIVEC [Suspect]
     Indication: CHRONIC MYELOID LEUKAEMIA
     Dosage: 1 DF DAILY
  2. PRESSEL [Concomitant]
     Indication: HYPERTENSION
     Dosage: 2 DF DAILY
  3. METFORMIN [Concomitant]
     Indication: DIABETES MELLITUS
     Dosage: 02 DF, UNK
     Route: 048

REACTIONS (10)
  - Abdominal pain upper [Recovered/Resolved]
  - Hypertension [Recovered/Resolved]
  - Cyst [Unknown]
  - Effusion [Recovered/Resolved with Sequelae]
  - Visual impairment [Unknown]
  - Cataract [Unknown]
  - Vomiting [Recovered/Resolved]
  - Pruritus generalised [Recovered/Resolved]
  - Hypophagia [Recovered/Resolved]
  - Gastritis [Recovered/Resolved]
